FAERS Safety Report 5048467-2 (Version None)
Quarter: 2006Q3

REPORT INFORMATION
  Report Type: 
  Country: None (occurrence: None)
  Receive Date: 20060705
  Receipt Date: 20060619
  Transmission Date: 20061208
  Serious: Yes (Death, Other)
  Sender: FDA-Public Use
  Company Number: 8017553

PATIENT
  Sex: Male

DRUGS (3)
  1. KEPPRA [Suspect]
     Indication: EPILEPSY
     Dosage: 1000 MG IV
     Route: 042
  2. DIAZEPAM [Concomitant]
  3. VALPROIC ACID [Concomitant]

REACTIONS (1)
  - LUNG DISORDER [None]
